FAERS Safety Report 13154432 (Version 1)
Quarter: 2017Q1

REPORT INFORMATION
  Report Type: Spontaneous
  Country: US (occurrence: US)
  Receive Date: 20170123
  Receipt Date: 20170123
  Transmission Date: 20170428
  Serious: Yes (Other)
  Sender: FDA-Public Use
  Company Number: None

PATIENT
  Age: 37 Year
  Sex: Female
  Weight: 51.75 kg

DRUGS (8)
  1. METHYL B12 [Concomitant]
  2. ADRECOR WITH SAM-E [Concomitant]
  3. VITAMIN D [Concomitant]
     Active Substance: CHOLECALCIFEROL
  4. PROGESTERONE. [Concomitant]
     Active Substance: PROGESTERONE
  5. IRON [Concomitant]
     Active Substance: IRON
  6. TESTOSTERONE. [Concomitant]
     Active Substance: TESTOSTERONE
  7. BUPROPION XL [Suspect]
     Active Substance: BUPROPION
     Indication: NEUROTRANSMITTER LEVEL ALTERED
     Dosage: ?          QUANTITY:1 TABLET(S);?
     Route: 048
     Dates: start: 20161223, end: 20170118
  8. METHYL FOLATE [Concomitant]

REACTIONS (5)
  - Nightmare [None]
  - Pruritus [None]
  - Middle insomnia [None]
  - Urticaria [None]
  - Anxiety [None]

NARRATIVE: CASE EVENT DATE: 20170116
